FAERS Safety Report 8354207-1 (Version None)
Quarter: 2012Q2

REPORT INFORMATION
  Report Type: 
  Country: None (occurrence: None)
  Receive Date: 20120511
  Receipt Date: 20120505
  Transmission Date: 20120825
  Serious: Yes (Other)
  Sender: FDA-Public Use
  Company Number: IT-ROCHE-1066159

PATIENT
  Sex: Female

DRUGS (7)
  1. CLONAZEPAM [Suspect]
     Indication: PRODUCT USED FOR UNKNOWN INDICATION
     Dosage: STRENGTH: 2.5 MG/ML
     Route: 048
     Dates: start: 20120412, end: 20120412
  2. RISPERDAL [Suspect]
     Indication: PRODUCT USED FOR UNKNOWN INDICATION
     Route: 048
     Dates: start: 20120412, end: 20120412
  3. LITHIUM CARBONATE [Suspect]
     Indication: PRODUCT USED FOR UNKNOWN INDICATION
     Route: 048
     Dates: start: 20120412, end: 20120412
  4. IBRUPROFEN [Suspect]
     Indication: PRODUCT USED FOR UNKNOWN INDICATION
     Route: 048
     Dates: start: 20120412, end: 20120412
  5. LORAZEPAM [Suspect]
     Indication: PRODUCT USED FOR UNKNOWN INDICATION
     Route: 048
     Dates: start: 20120412, end: 20120412
  6. FLUVOXAMINE MALEATE [Concomitant]
     Indication: PSYCHOTIC DISORDER
     Route: 048
  7. DEPAKENE [Concomitant]
     Indication: PSYCHOTIC DISORDER
     Route: 048

REACTIONS (2)
  - SOPOR [None]
  - SELF INJURIOUS BEHAVIOUR [None]
